FAERS Safety Report 10236468 (Version 1)
Quarter: 2014Q2

REPORT INFORMATION
  Report Type: Spontaneous
  Country: US (occurrence: US)
  Receive Date: 20140613
  Receipt Date: 20140613
  Transmission Date: 20141212
  Serious: Yes (Death, Hospitalization)
  Sender: FDA-Public Use
  Company Number: US-BRISTOL-MYERS SQUIBB COMPANY-20962247

PATIENT
  Age: 76 Year
  Sex: Female
  Weight: 81.63 kg

DRUGS (1)
  1. ELIQUIS [Suspect]

REACTIONS (4)
  - Death [Fatal]
  - Blood pressure increased [Unknown]
  - Oxygen saturation decreased [Unknown]
  - Colitis [Unknown]
